FAERS Safety Report 8427110-6 (Version None)
Quarter: 2012Q2

REPORT INFORMATION
  Report Type: 
  Country: None (occurrence: None)
  Receive Date: 20120323
  Receipt Date: 20110427
  Transmission Date: 20120825
  Serious: Yes (Hospitalization, Other)
  Sender: FDA-Public Use
  Company Number: 163-21880-11043471

PATIENT
  Age: 85 Year
  Sex: Male
  Weight: 86.36 kg

DRUGS (8)
  1. VITAMIN B12(CYAN000BALAMIN)(UNKNOWN) [Concomitant]
  2. REVLIMID [Suspect]
     Indication: MULTIPLE MYELOMA
     Dosage: 15 MG, 1 IN 1 D, PO
     Route: 048
     Dates: start: 20110404
  3. DEXAMETHASONE [Concomitant]
  4. IRON (IRON)(UNKNOWN) [Concomitant]
  5. ASPIRIN [Concomitant]
  6. IMDUR (ISOSORBIDE MONONITRATE)(UNKNOWN) [Concomitant]
  7. METOPROLOL TARTRATE [Concomitant]
  8. SIMVASTATIN [Concomitant]

REACTIONS (3)
  - RENAL IMPAIRMENT [None]
  - DYSPNOEA [None]
  - WEIGHT DECREASED [None]
